FAERS Safety Report 6423692-4 (Version None)
Quarter: 2009Q4

REPORT INFORMATION
  Report Type: 
  Country: None (occurrence: None)
  Receive Date: 20091102
  Receipt Date: 20091020
  Transmission Date: 20100525
  Serious: Yes (Other)
  Sender: FDA-Public Use
  Company Number: GB-PFIZER INC-2009286133

PATIENT

DRUGS (1)
  1. LYRICA [Suspect]

REACTIONS (2)
  - ATRIOVENTRICULAR BLOCK [None]
  - CARDIAC DISORDER [None]
